FAERS Safety Report 7677140-7 (Version None)
Quarter: 2011Q3

REPORT INFORMATION
  Report Type: 
  Country: None (occurrence: None)
  Receive Date: 20110811
  Receipt Date: 20110803
  Transmission Date: 20111222
  Serious: Yes (Hospitalization)
  Sender: FDA-Public Use
  Company Number: AU-JNJFOC-20110707623

PATIENT
  Sex: Female

DRUGS (19)
  1. DIAZEPAM [Concomitant]
     Route: 065
     Dates: start: 20110716
  2. OLANZAPINE [Concomitant]
     Dosage: TOMORROW MORNING
     Route: 065
     Dates: start: 20110717
  3. INVEGA SUSTENNA [Suspect]
     Route: 030
     Dates: start: 20110506
  4. ZUCLOPENTHIXOL [Concomitant]
     Route: 065
     Dates: start: 20110718
  5. OLANZAPINE [Concomitant]
     Dosage: AT NIGHT
     Route: 065
     Dates: start: 20110718
  6. LORAZEPAM [Concomitant]
     Route: 065
     Dates: start: 20110719, end: 20110719
  7. INVEGA SUSTENNA [Suspect]
     Indication: SCHIZOPHRENIA
     Route: 030
     Dates: start: 20110128
  8. INVEGA SUSTENNA [Suspect]
     Route: 030
     Dates: start: 20110715
  9. INVEGA SUSTENNA [Suspect]
     Route: 030
     Dates: start: 20110328
  10. QUETIAPINE [Concomitant]
     Dosage: 200
     Route: 065
     Dates: start: 20110716
  11. LORAZEPAM [Concomitant]
     Route: 065
     Dates: start: 20110720
  12. INVEGA SUSTENNA [Suspect]
     Route: 030
     Dates: start: 20110225
  13. LORAZEPAM [Concomitant]
     Route: 065
     Dates: start: 20110718, end: 20110718
  14. INVEGA SUSTENNA [Suspect]
     Route: 030
     Dates: start: 20110617
  15. LORAZEPAM [Concomitant]
     Dosage: AT NIGHT
     Route: 065
     Dates: start: 20110717, end: 20110717
  16. MIDAZOLAM HCL [Concomitant]
     Indication: AGITATION
     Route: 065
     Dates: start: 20110716
  17. DIAZEPAM [Concomitant]
     Indication: AGITATION
     Route: 065
     Dates: start: 20110716
  18. LORAZEPAM [Concomitant]
     Route: 065
     Dates: start: 20110716
  19. HALOPERIDOL [Concomitant]
     Dosage: AT 13:50
     Route: 042
     Dates: start: 20110716

REACTIONS (3)
  - CONDITION AGGRAVATED [None]
  - TREATMENT NONCOMPLIANCE [None]
  - HOSPITALISATION [None]
